FAERS Safety Report 16464326 (Version 1)
Quarter: 2019Q2

REPORT INFORMATION
  Report Type: Spontaneous
  Country: US (occurrence: US)
  Receive Date: 20190620
  Receipt Date: 20190620
  Transmission Date: 20190711
  Serious: Yes (Life-Threatening, Other)
  Sender: FDA-Public Use
  Company Number: None

PATIENT
  Age: 49 Year
  Sex: Female
  Weight: 73.35 kg

DRUGS (6)
  1. LUNESTA [Concomitant]
     Active Substance: ESZOPICLONE
  2. VENALAFAXIN [Concomitant]
  3. AIMOVIG [Concomitant]
     Active Substance: ERENUMAB-AOOE
  4. LAMICTAL [Concomitant]
     Active Substance: LAMOTRIGINE
  5. KRATOM [Suspect]
     Active Substance: HERBALS\MITRAGYNINE
  6. XANAX [Concomitant]
     Active Substance: ALPRAZOLAM

REACTIONS (3)
  - Depression [None]
  - Loss of consciousness [None]
  - Dyspnoea [None]

NARRATIVE: CASE EVENT DATE: 20190429
